FAERS Safety Report 8254954 (Version 2)
Quarter: 2012Q4

REPORT INFORMATION
  Report Type: 
  Country: US (occurrence: US)
  Receive Date: 20111118
  Receipt Date: 20121115
  Transmission Date: 20130627
  Serious: No
  Sender: FDA-Public Use
  Company Number: US-BRISTOL-MYERS SQUIBB COMPANY-15659360

PATIENT
  Age: 55 Year
  Sex: Female

DRUGS (7)
  1. GLUCOPHAGE XR [Suspect]
     Indication: DIABETES MELLITUS
     Dosage: Exp Date:31-Dec-2012
  2. BYETTA [Concomitant]
  3. MAXZIDE [Concomitant]
  4. ATENOLOL [Concomitant]
  5. DIOVAN [Concomitant]
  6. PROTONIX [Concomitant]
  7. CRESTOR [Concomitant]

REACTIONS (1)
  - Blood glucose abnormal [Unknown]
